FAERS Safety Report 5227780-X (Version None)
Quarter: 2007Q1

REPORT INFORMATION
  Report Type: 
  Country: None (occurrence: None)
  Receive Date: 20070202
  Receipt Date: 20070123
  Transmission Date: 20070707
  Serious: Yes (Other)
  Sender: FDA-Public Use
  Company Number: JP-PFIZER INC-2007007281

PATIENT
  Age: 90 Year
  Sex: Male

DRUGS (1)
  1. CABERGOLINE [Suspect]
     Route: 048

REACTIONS (1)
  - PULMONARY OEDEMA [None]
